FAERS Safety Report 9303822 (Version 2)
Quarter: 2013Q4

REPORT INFORMATION
  Report Type: Report from Study
  Country: DE (occurrence: DE)
  Receive Date: 20130522
  Receipt Date: 20131031
  Transmission Date: 20140711
  Serious: Yes (Hospitalization)
  Sender: FDA-Public Use
  Company Number: DE-GLAXOSMITHKLINE-B0893181A

PATIENT
  Age: 61 Year
  Sex: Female
  Weight: 105 kg

DRUGS (4)
  1. LAPATINIB [Suspect]
     Indication: BREAST CANCER
     Dosage: 750UG PER DAY
     Route: 048
     Dates: start: 20120426
  2. PACLITAXEL [Suspect]
     Indication: BREAST CANCER
     Dosage: 160UG WEEKLY
     Route: 042
     Dates: start: 20120426
  3. HERCEPTIN [Suspect]
     Indication: BREAST CANCER
     Dosage: 630UG THREE TIMES PER WEEK
     Route: 042
     Dates: start: 20120426
  4. MYOCET [Suspect]
     Indication: BREAST CANCER
     Dosage: 40UG WEEKLY
     Route: 042
     Dates: start: 20120426

REACTIONS (1)
  - Seroma [Recovered/Resolved]
